FAERS Safety Report 6915247-X (Version None)
Quarter: 2010Q3

REPORT INFORMATION
  Report Type: 
  Country: None (occurrence: None)
  Receive Date: 20100806
  Receipt Date: 20100806
  Transmission Date: 20110219
  Serious: Yes (Other)
  Sender: FDA-Public Use
  Company Number: None

PATIENT
  Age: 78 Year
  Sex: Male
  Weight: 87.0906 kg

DRUGS (1)
  1. PROTAMINE SULFATE [Suspect]
     Indication: HAEMOSTASIS
     Dosage: 120 MG ONCE INTRA-ARTERIAL
     Route: 013

REACTIONS (3)
  - HYPOTENSION [None]
  - MITRAL VALVE INCOMPETENCE [None]
  - PULMONARY HYPERTENSION [None]
